FAERS Safety Report 4487148-0 (Version None)
Quarter: 2004Q4

REPORT INFORMATION
  Report Type: 
  Country: None (occurrence: None)
  Receive Date: 20041027
  Receipt Date: 20040510
  Transmission Date: 20050328
  Serious: Yes (Other)
  Sender: FDA-Public Use
  Company Number: US-AMGEN-US076066

PATIENT
  Sex: Female
  Weight: 96.2 kg

DRUGS (7)
  1. ETANERCEPT [Suspect]
     Indication: PSORIASIS
     Route: 058
     Dates: start: 20030804, end: 20040506
  2. SYNTHROID [Concomitant]
  3. TRIAMTERENE AND HYDROCHLOROTHIAZIDE [Concomitant]
  4. METHYLDOPA [Concomitant]
     Route: 048
  5. ASPIRIN [Concomitant]
  6. FOLIC ACID [Concomitant]
     Route: 048
  7. LIPITOR [Concomitant]

REACTIONS (1)
  - B-CELL SMALL LYMPHOCYTIC LYMPHOMA [None]
